FAERS Safety Report 8059227 (Version 2)
Quarter: 2012Q4

REPORT INFORMATION
  Report Type: 
  Country: IT (occurrence: IT)
  Receive Date: 20110728
  Receipt Date: 20120927
  Transmission Date: 20130627
  Serious: No
  Sender: FDA-Public Use
  Company Number: PHHY2011IT64956

PATIENT

DRUGS (3)
  1. TASIGNA [Suspect]
     Dosage: 800 mg, daily
     Route: 048
     Dates: start: 20081023
  2. TASIGNA [Suspect]
     Dosage: 400 mg, daily
     Route: 048
  3. EUTIROX [Concomitant]

REACTIONS (1)
  - Musculoskeletal pain [Not Recovered/Not Resolved]
